FAERS Safety Report 25134783 (Version 1)
Quarter: 2025Q1

REPORT INFORMATION
  Report Type: Spontaneous
  Country: US (occurrence: None)
  Receive Date: 20250327
  Receipt Date: 20250327
  Transmission Date: 20250408
  Serious: Yes (Death)
  Sender: FDA-CTU
  Company Number: None

PATIENT
  Age: 70 Year
  Sex: Male

DRUGS (3)
  1. POMALYST [Suspect]
     Active Substance: POMALIDOMIDE
     Dosage: FREQUENCY : DAILY;?
     Route: 048
     Dates: start: 20250117, end: 20250214
  2. TALQUETAMAB [Suspect]
     Active Substance: TALQUETAMAB
  3. RADIATION THERAPY [Suspect]
     Active Substance: RADIATION THERAPY

REACTIONS (1)
  - Hospice care [None]

NARRATIVE: CASE EVENT DATE: 20250324
